FAERS Safety Report 8161594-6 (Version None)
Quarter: 2012Q1

REPORT INFORMATION
  Report Type: 
  Country: None (occurrence: None)
  Receive Date: 20120224
  Receipt Date: 20120215
  Transmission Date: 20120608
  Serious: Yes (Hospitalization)
  Sender: FDA-Public Use
  Company Number: US-BAYER-2011-110272

PATIENT
  Age: 34 Year
  Sex: Female
  Weight: 54 kg

DRUGS (4)
  1. YAZ [Suspect]
     Indication: ORAL CONTRACEPTION
     Dosage: UNK
     Dates: start: 20080101, end: 20100101
  2. YASMIN [Suspect]
     Indication: ORAL CONTRACEPTION
     Dosage: UNK
     Dates: start: 20080101, end: 20100101
  3. DROSPIRENONE AND ETHINYL ESTRADIOL [Suspect]
     Indication: ORAL CONTRACEPTION
     Dosage: UNK
     Dates: start: 20080101, end: 20100101
  4. DOXYCYCLINE [Concomitant]
     Dosage: 100 MG, UNK
     Route: 048
     Dates: start: 20091105

REACTIONS (2)
  - PAIN [None]
  - PANCREATITIS [None]
